FAERS Safety Report 8816037 (Version 2)
Quarter: 2012Q4

REPORT INFORMATION
  Report Type: Report from Study
  Country: US (occurrence: US)
  Receive Date: 20120928
  Receipt Date: 20121231
  Transmission Date: 20130627
  Serious: Yes (Other)
  Sender: FDA-Public Use
  Company Number: US-ABBOTT-12P-163-0972588-00

PATIENT
  Sex: Female

DRUGS (14)
  1. HUMIRA 40 MG/0.8 ML PEN [Suspect]
     Indication: RHEUMATOID ARTHRITIS
     Route: 058
     Dates: start: 200805
  2. CALCIUM [Concomitant]
     Indication: PRODUCT USED FOR UNKNOWN INDICATION
     Dosage: 1 daily - days, , Ref:  0
  3. OMEPRAZOLE [Concomitant]
     Indication: PRODUCT USED FOR UNKNOWN INDICATION
     Dosage: 1 daily - days, , Ref:  0
  4. RESTASIS [Concomitant]
     Indication: PRODUCT USED FOR UNKNOWN INDICATION
     Dosage: 1 qttou twice daily - days, , Ref:  0
  5. ZOCOR [Concomitant]
     Indication: PRODUCT USED FOR UNKNOWN INDICATION
     Dosage: 1 daily - days, , Ref:  0
  6. CHOLECALCIFEROL [Concomitant]
     Indication: PRODUCT USED FOR UNKNOWN INDICATION
     Dosage: 1 daily - days, , Ref:  0
  7. CELEBREX [Concomitant]
     Indication: PRODUCT USED FOR UNKNOWN INDICATION
     Dosage: 1 Capsule daily - days, 90, Ref:  3
  8. METHOTREXATE [Concomitant]
     Indication: PRODUCT USED FOR UNKNOWN INDICATION
     Dosage: - days, 6ml, Ref:  3
  9. FOLIC ACID [Concomitant]
     Indication: PRODUCT USED FOR UNKNOWN INDICATION
     Dosage: 1 tablet daily - days, 90, Ref:  3
  10. ASPIRIN [Concomitant]
     Indication: PRODUCT USED FOR UNKNOWN INDICATION
     Dosage: 1 daily - days, Ref:  0
  11. ATENOLOL [Concomitant]
     Indication: PRODUCT USED FOR UNKNOWN INDICATION
     Dosage: 12.5 mg daily - days, Ref:  0
  12. TUMS [Concomitant]
     Indication: PRODUCT USED FOR UNKNOWN INDICATION
     Dosage: - days, Ref:  0
  13. RECLAST [Concomitant]
     Indication: PRODUCT USED FOR UNKNOWN INDICATION
     Dosage: 5mg/100ml 5mg Next due:  20 Jul 2014, 5mg, Ref:  0
  14. METHOTREXATE [Concomitant]
     Indication: PRODUCT USED FOR UNKNOWN INDICATION
     Dosage: - days, 48, Ref:  3

REACTIONS (46)
  - Arteriosclerosis [Unknown]
  - Cerebrovascular accident [Unknown]
  - Pneumonia [Unknown]
  - Pneumonia [Unknown]
  - Injection site vesicles [Unknown]
  - Nausea [Unknown]
  - Glossitis [Unknown]
  - Stomatitis [Unknown]
  - Alopecia [Unknown]
  - Dyspepsia [Unknown]
  - Musculoskeletal stiffness [Unknown]
  - Arthralgia [Unknown]
  - Grip strength decreased [Unknown]
  - Tenosynovitis [Unknown]
  - Epicondylitis [Unknown]
  - Temporomandibular joint syndrome [Unknown]
  - Pelvic pain [Unknown]
  - Arthralgia [Unknown]
  - Neck pain [Unknown]
  - Headache [Unknown]
  - Back pain [Unknown]
  - Anti-cyclic citrullinated peptide antibody positive [Unknown]
  - Sjogren^s syndrome [Unknown]
  - Fatigue [Unknown]
  - Osteoarthritis [Unknown]
  - Hyperlipidaemia [Unknown]
  - Pruritus [Unknown]
  - Anxiety [Unknown]
  - Irritability [Unknown]
  - Depression [Unknown]
  - Memory impairment [Unknown]
  - Dizziness postural [Unknown]
  - Gait disturbance [Unknown]
  - Visual impairment [Unknown]
  - Cataract [Unknown]
  - Cough [Unknown]
  - Sinusitis [Unknown]
  - Dyspnoea exertional [Unknown]
  - Hypertension [Unknown]
  - Gravitational oedema [Unknown]
  - Constipation [Unknown]
  - Nocturia [Unknown]
  - Pelvic floor muscle weakness [Unknown]
  - Menopausal symptoms [Unknown]
  - Upper respiratory tract infection [Unknown]
  - Pneumonia [Unknown]
